FAERS Safety Report 10994073 (Version 1)
Quarter: 2015Q2

REPORT INFORMATION
  Report Type: Spontaneous
  Country: US (occurrence: None)
  Receive Date: 20150406
  Receipt Date: 20150406
  Transmission Date: 20150821
  Serious: Yes (Life-Threatening)
  Sender: FDA-Public Use
  Company Number: None

PATIENT
  Age: 44 Year
  Sex: Female
  Weight: 74.39 kg

DRUGS (2)
  1. TRIFLUOPERAZINE [Suspect]
     Active Substance: TRIFLUOPERAZINE\TRIFLUOPERAZINE HYDROCHLORIDE
     Indication: MENTAL DISORDER
     Dosage: 1 PILL
     Route: 048
     Dates: start: 20011021, end: 20150403
  2. GELATIN MULTIVITAMINS [Concomitant]

REACTIONS (4)
  - Basal cell carcinoma [None]
  - Wound [None]
  - Family stress [None]
  - Rash [None]

NARRATIVE: CASE EVENT DATE: 19991021
